FAERS Safety Report 13108075 (Version 1)
Quarter: 2017Q1

REPORT INFORMATION
  Report Type: Spontaneous
  Country: US (occurrence: US)
  Receive Date: 20170112
  Receipt Date: 20170112
  Transmission Date: 20170428
  Serious: No
  Sender: FDA-Public Use
  Company Number: US-PFIZER INC-2017008293

PATIENT
  Sex: Female

DRUGS (1)
  1. XELJANZ [Suspect]
     Active Substance: TOFACITINIB CITRATE
     Dosage: 5 MG, UNK

REACTIONS (17)
  - Cough [Unknown]
  - Tinnitus [Unknown]
  - Joint swelling [Unknown]
  - Memory impairment [Unknown]
  - Musculoskeletal stiffness [Unknown]
  - Dry mouth [Unknown]
  - Eye pain [Unknown]
  - Alopecia [Unknown]
  - Headache [Unknown]
  - Dysphagia [Unknown]
  - Nausea [Unknown]
  - Myalgia [Unknown]
  - Constipation [Unknown]
  - Dry eye [Unknown]
  - Fatigue [Unknown]
  - Arthralgia [Unknown]
  - Dry skin [Unknown]
